FAERS Safety Report 9123865 (Version 1)
Quarter: 2013Q1

REPORT INFORMATION
  Report Type: Spontaneous
  Country: FR (occurrence: FR)
  Receive Date: 20130115
  Receipt Date: 20130115
  Transmission Date: 20140127
  Serious: Yes (Hospitalization)
  Sender: FDA-Public Use
  Company Number: FR-PFIZER INC-2013012409

PATIENT
  Sex: Female

DRUGS (2)
  1. ALDACTAZINE [Suspect]
     Dosage: 1 DF, 1X/DAY
     Route: 048
     Dates: start: 20120713, end: 20120727
  2. ALDACTONE [Suspect]
     Dosage: UNK
     Dates: start: 20120725, end: 20120727

REACTIONS (2)
  - Rash erythematous [Recovering/Resolving]
  - Photosensitivity reaction [Recovered/Resolved]
